FAERS Safety Report 12733838 (Version 2)
Quarter: 2016Q3

REPORT INFORMATION
  Report Type: Spontaneous
  Country: US (occurrence: US)
  Receive Date: 20160912
  Receipt Date: 20160930
  Transmission Date: 20161109
  Serious: Yes (Hospitalization)
  Sender: FDA-Public Use
  Company Number: US-JNJFOC-20160825761

PATIENT
  Age: 61 Year
  Sex: Female
  Weight: 69.4 kg

DRUGS (1)
  1. XARELTO [Suspect]
     Active Substance: RIVAROXABAN
     Indication: THROMBOSIS PROPHYLAXIS
     Dosage: 15 TO 20 MG
     Route: 048
     Dates: start: 20131025, end: 20131108

REACTIONS (5)
  - Subdural haematoma [Recovered/Resolved]
  - Gastrointestinal haemorrhage [Recovering/Resolving]
  - Syncope [Recovered/Resolved]
  - Fall [Recovered/Resolved]
  - Cerebral haemorrhage [Recovering/Resolving]

NARRATIVE: CASE EVENT DATE: 2013
